FAERS Safety Report 10623630 (Version 2)
Quarter: 2015Q2

REPORT INFORMATION
  Report Type: Spontaneous
  Country: US (occurrence: US)
  Receive Date: 20141203
  Receipt Date: 20150422
  Transmission Date: 20150821
  Serious: Yes (Hospitalization)
  Sender: FDA-Public Use
  Company Number: US-PFIZER INC-2014329601

PATIENT
  Age: 54 Year
  Sex: Male

DRUGS (4)
  1. LYRICA [Suspect]
     Active Substance: PREGABALIN
     Indication: NEURALGIA
     Dosage: 25 MG, UNK
  2. VICODIN/HYDROCODONE [Concomitant]
     Indication: PAIN
     Dosage: 500 MG, 3X/DAY (1 IN MORNING AND 2 IN EVENING)
     Dates: start: 200709
  3. TRIMETHOPRIM-SULFA METHOXAZOLE [Concomitant]
     Indication: ARTHROPOD BITE
     Dosage: 1 DF (160-800MG), 2X/DAY
     Route: 048
     Dates: start: 20140725
  4. LYRICA [Suspect]
     Active Substance: PREGABALIN
     Indication: PAIN
     Dosage: 50 MG, 2X/DAY (ONE IN THE MORNING AND ONE IN THE NIGHT)

REACTIONS (7)
  - Cold sweat [Recovered/Resolved]
  - Diplopia [Unknown]
  - Muscle spasms [Recovered/Resolved]
  - Withdrawal syndrome [Recovered/Resolved]
  - Diarrhoea [Recovered/Resolved]
  - Semen discolouration [Recovered/Resolved]
  - Hyperhidrosis [Recovered/Resolved]

NARRATIVE: CASE EVENT DATE: 201411
